FAERS Safety Report 20351425 (Version 1)
Quarter: 2022Q1

REPORT INFORMATION
  Report Type: Spontaneous
  Country: US (occurrence: None)
  Receive Date: 20220118
  Receipt Date: 20220118
  Transmission Date: 20220423
  Serious: Yes (unspecified)
  Sender: FDA-Public Use
  Company Number: None

PATIENT
  Age: 41 Year
  Sex: Female
  Weight: 143.79 kg

DRUGS (2)
  1. SOTROVIMAB [Suspect]
     Active Substance: SOTROVIMAB
     Route: 042
     Dates: start: 20220111, end: 20220111
  2. Sotrovima b [Concomitant]
     Dates: start: 20220111, end: 20220111

REACTIONS (3)
  - Infusion related reaction [None]
  - Swelling face [None]
  - Pruritus [None]

NARRATIVE: CASE EVENT DATE: 20220111
